FAERS Safety Report 19422223 (Version 1)
Quarter: 2021Q2

REPORT INFORMATION
  Report Type: Spontaneous
  Country: TR (occurrence: TR)
  Receive Date: 20210616
  Receipt Date: 20210616
  Transmission Date: 20210717
  Serious: Yes (Death, Other)
  Sender: FDA-Public Use
  Company Number: TR-SUN PHARMACEUTICAL INDUSTRIES LTD-2021RR-301005

PATIENT
  Age: 10 Year
  Sex: Female

DRUGS (12)
  1. IRINOTECAN [Suspect]
     Active Substance: IRINOTECAN
     Dosage: 130 MILLIGRAM/SQ. METER
     Route: 065
  2. OXALIPLATIN. [Suspect]
     Active Substance: OXALIPLATIN
     Dosage: 200 MILLIGRAM/SQ. METER
     Route: 065
  3. TOPOTECAN [Concomitant]
     Active Substance: TOPOTECAN HYDROCHLORIDE
     Indication: DESMOPLASTIC SMALL ROUND CELL TUMOUR
     Dosage: 2 MILLIGRAM/SQ. METER, DAILY
     Route: 065
  4. GEMCITABINE. [Suspect]
     Active Substance: GEMCITABINE
     Indication: DESMOPLASTIC SMALL ROUND CELL TUMOUR
     Dosage: 1000 MILLIGRAM/SQ. METER, DAILY
     Route: 065
  5. SUNITINIB [Suspect]
     Active Substance: SUNITINIB
     Indication: DESMOPLASTIC SMALL ROUND CELL TUMOUR
     Dosage: UNK
     Route: 065
  6. OXALIPLATIN. [Suspect]
     Active Substance: OXALIPLATIN
     Dosage: 300 MILLIGRAM/SQ. METER
     Route: 065
  7. OXALIPLATIN. [Suspect]
     Active Substance: OXALIPLATIN
     Indication: DESMOPLASTIC SMALL ROUND CELL TUMOUR
     Dosage: 85 MILLIGRAM/SQ. METER, DAILY
     Route: 065
  8. BUSULFAN. [Suspect]
     Active Substance: BUSULFAN
     Indication: DESMOPLASTIC SMALL ROUND CELL TUMOUR
     Dosage: 4 MILLIGRAM/SQ. METER, DAILY
     Route: 065
  9. CYCLOPHOSPHAMIDE. [Concomitant]
     Active Substance: CYCLOPHOSPHAMIDE
     Indication: DESMOPLASTIC SMALL ROUND CELL TUMOUR
     Dosage: 2.1 G/M^2/D
  10. MELPHALAN. [Suspect]
     Active Substance: MELPHALAN
     Indication: DESMOPLASTIC SMALL ROUND CELL TUMOUR
     Dosage: 4 MILLIGRAM/SQ. METER, DAILY
     Route: 065
  11. IRINOTECAN [Suspect]
     Active Substance: IRINOTECAN
     Indication: DESMOPLASTIC SMALL ROUND CELL TUMOUR
     Dosage: 175 MILLIGRAM/SQ. METER, DAILY
     Route: 065
  12. IRINOTECAN [Suspect]
     Active Substance: IRINOTECAN
     Dosage: 200 MILLIGRAM/SQ. METER
     Route: 033

REACTIONS (3)
  - Disease progression [Fatal]
  - Disease recurrence [Unknown]
  - Renal tubular disorder [Unknown]
